FAERS Safety Report 8309344-4 (Version None)
Quarter: 2012Q2

REPORT INFORMATION
  Report Type: 
  Country: None (occurrence: None)
  Receive Date: 20120425
  Receipt Date: 20120414
  Transmission Date: 20120825
  Serious: Yes (Other)
  Sender: FDA-Public Use
  Company Number: DE-PAR PHARMACEUTICAL, INC-2012SCPR004326

PATIENT

DRUGS (5)
  1. LEVETIRACETAM [Suspect]
     Indication: EPILEPSY
     Dosage: UNK, UNKNOWN
     Route: 065
  2. LEVETIRACETAM [Suspect]
     Dosage: 2000 MG, / DAY
     Route: 065
  3. LAMOTRGINE [Suspect]
     Indication: EPILEPSY
     Dosage: UNK, UNKNOWN
     Route: 065
  4. LAMOTRGINE [Suspect]
     Dosage: RAPIDLY REDUCED DOSE
     Route: 065
  5. LAMOTRGINE [Suspect]
     Dosage: 1000 MG, / DAY
     Route: 065

REACTIONS (1)
  - MATERNAL EXPOSURE DURING PREGNANCY [None]
